FAERS Safety Report 6573361-5 (Version None)
Quarter: 2010Q1

REPORT INFORMATION
  Report Type: 
  Country: None (occurrence: None)
  Receive Date: 20100208
  Receipt Date: 20100204
  Transmission Date: 20100710
  Serious: Yes (Death)
  Sender: FDA-Public Use
  Company Number: SE-ASTRAZENECA-2010SE05239

PATIENT
  Age: 35 Year
  Sex: Male

DRUGS (1)
  1. QUETIAPINE [Suspect]
     Route: 048

REACTIONS (1)
  - SUDDEN CARDIAC DEATH [None]
